FAERS Safety Report 23983868 (Version 1)
Quarter: 2024Q2

REPORT INFORMATION
  Report Type: Spontaneous
  Country: US (occurrence: US)
  Receive Date: 20240618
  Receipt Date: 20240618
  Transmission Date: 20240716
  Serious: No
  Sender: FDA-Public Use
  Company Number: US-AUROBINDO-AUR-APL-2023-059470

PATIENT
  Sex: Male

DRUGS (1)
  1. TAMSULOSIN HYDROCHLORIDE [Suspect]
     Active Substance: TAMSULOSIN HYDROCHLORIDE
     Indication: Benign prostatic hyperplasia
     Dosage: UNK (FOR TWO WEEKS)
     Route: 065

REACTIONS (8)
  - Headache [Unknown]
  - Nausea [Unknown]
  - Dizziness [Unknown]
  - Sedation [Unknown]
  - Illness [Unknown]
  - Somnolence [Unknown]
  - Malaise [Unknown]
  - Product substitution issue [Unknown]
